FAERS Safety Report 5195554-4 (Version None)
Quarter: 2006Q4

REPORT INFORMATION
  Report Type: 
  Country: None (occurrence: None)
  Receive Date: 20061222
  Receipt Date: 20061222
  Transmission Date: 20070319
  Serious: No
  Sender: FDA-Public Use
  Company Number: None

PATIENT
  Age: 43 Year
  Sex: Male
  Weight: 112 kg

DRUGS (2)
  1. CEFTRIAXONE [Suspect]
     Indication: CELLULITIS
     Dosage: 2 GRAMS ONCE IVPB
     Route: 042
     Dates: start: 20060725
  2. CEPHALEXIN [Suspect]
     Dosage: 500MG QID PO
     Route: 048
     Dates: start: 20060725

REACTIONS (3)
  - EYE SWELLING [None]
  - OCULAR HYPERAEMIA [None]
  - RASH [None]
